FAERS Safety Report 6147446-1 (Version None)
Quarter: 2009Q2

REPORT INFORMATION
  Report Type: 
  Country: None (occurrence: None)
  Receive Date: 20090408
  Receipt Date: 20090330
  Transmission Date: 20091009
  Serious: Yes (Life-Threatening)
  Sender: FDA-Public Use
  Company Number: JP-BRISTOL-MYERS SQUIBB COMPANY-14575153

PATIENT
  Age: 59 Year
  Sex: Male

DRUGS (8)
  1. ABILIFY [Suspect]
     Indication: SCHIZOPHRENIA
     Dosage: STRENGTH:6MG TAB.
     Route: 048
     Dates: end: 20090228
  2. RISPERIDONE [Suspect]
     Route: 048
  3. GASPORT [Concomitant]
  4. AKINETON [Concomitant]
  5. LEVOTOMIN [Concomitant]
  6. DEPAS [Concomitant]
  7. BROTIZOLAM [Concomitant]
     Dosage: TABLET.
  8. SENNOSIDE A+B [Concomitant]
     Dosage: TABLET.

REACTIONS (2)
  - HYPONATRAEMIA [None]
  - NEUROLEPTIC MALIGNANT SYNDROME [None]
